FAERS Safety Report 23935502 (Version 1)
Quarter: 2024Q2

REPORT INFORMATION
  Report Type: Spontaneous
  Country: CN (occurrence: CN)
  Receive Date: 20240604
  Receipt Date: 20240604
  Transmission Date: 20240715
  Serious: Yes (Other)
  Sender: FDA-Public Use
  Company Number: None

PATIENT
  Age: 54 Year
  Sex: Male
  Weight: 57 kg

DRUGS (2)
  1. ONIVYDE [Suspect]
     Active Substance: IRINOTECAN HYDROCHLORIDE
     Indication: Malignant neoplasm of ampulla of Vater
     Dosage: 160 MG, QD ON D1
     Route: 042
     Dates: start: 20240508, end: 20240508
  2. TORIPALIMAB [Concomitant]
     Active Substance: TORIPALIMAB
     Indication: Small intestine carcinoma
     Dosage: 160 MG, D1
     Route: 042
     Dates: start: 20240508, end: 20240508

REACTIONS (1)
  - Myelosuppression [Recovering/Resolving]
